FAERS Safety Report 8085038-8 (Version None)
Quarter: 2012Q1

REPORT INFORMATION
  Report Type: 
  Country: None (occurrence: None)
  Receive Date: 20120128
  Receipt Date: 20110314
  Transmission Date: 20120608
  Serious: No
  Sender: FDA-Public Use
  Company Number: US-ABBOTT-11P-163-0711210-00

PATIENT
  Age: 46 Year
  Sex: Female

DRUGS (13)
  1. CITALOPRAM [Concomitant]
     Indication: PRODUCT USED FOR UNKNOWN INDICATION
  2. PENTASA [Concomitant]
     Indication: CROHN'S DISEASE
  3. ELAVIL [Concomitant]
     Indication: ANXIETY
  4. FISH OIL [Concomitant]
     Indication: PRODUCT USED FOR UNKNOWN INDICATION
  5. HUMIRA [Suspect]
     Indication: CROHN'S DISEASE
     Dates: start: 20100828
  6. VITAMIN B-12 [Concomitant]
     Indication: CROHN'S DISEASE
     Route: 050
  7. LOEGESTROL [Concomitant]
     Indication: CONTRACEPTION
     Dosage: DAILY
  8. FLONASE [Concomitant]
     Indication: SEASONAL ALLERGY
     Dosage: NASAL SPRAY; 2 PUFFS EACH NOSTRIL
  9. MERCAPTOPURINE [Concomitant]
     Indication: CROHN'S DISEASE
     Dosage: 50 1.5 MG DAILY
  10. FLAX OIL [Concomitant]
     Indication: PRODUCT USED FOR UNKNOWN INDICATION
  11. UNKNOWN MEDICATION/HCTZ [Concomitant]
     Indication: HYPERTENSION
     Dosage: DAILY
  12. FOLIC ACID [Concomitant]
     Indication: PRODUCT USED FOR UNKNOWN INDICATION
  13. CALCIUM [Concomitant]
     Indication: PRODUCT USED FOR UNKNOWN INDICATION

REACTIONS (1)
  - ALOPECIA [None]
